FAERS Safety Report 6286255-X (Version None)
Quarter: 2009Q3

REPORT INFORMATION
  Report Type: 
  Country: None (occurrence: None)
  Receive Date: 20090728
  Receipt Date: 20090715
  Transmission Date: 20100115
  Serious: Yes (Hospitalization)
  Sender: FDA-Public Use
  Company Number: FR-PFIZER INC-2009240360

PATIENT
  Age: 70 Year

DRUGS (7)
  1. SOLU-MEDROL [Suspect]
     Indication: DRUG TOXICITY
     Dosage: UNK
     Route: 042
     Dates: start: 20090427, end: 20090427
  2. PARACETAMOL [Suspect]
     Indication: PAIN
     Dosage: 1 G, 3X/DAY
     Route: 042
     Dates: start: 20090427, end: 20090428
  3. ACUPAN [Suspect]
     Indication: PAIN
     Dosage: 40 MG, 2X/DAY
     Route: 042
     Dates: start: 20090427, end: 20090428
  4. MIDAZOLAM [Suspect]
     Indication: ANAESTHETIC PREMEDICATION
     Dosage: UNK
     Route: 042
     Dates: start: 20090427, end: 20090427
  5. SUFENTA PRESERVATIVE FREE [Suspect]
     Indication: ANAESTHESIA
     Dosage: 24 UG, 1X/DAY
     Route: 042
     Dates: start: 20090427, end: 20090427
  6. DIPRIVAN [Suspect]
     Indication: ANAESTHESIA
     Dosage: 200 MG, 1X/DAY
     Route: 042
     Dates: start: 20090427, end: 20090427
  7. EPHEDRINE [Suspect]
     Indication: HYPOTENSION
     Dosage: UNK
     Route: 042
     Dates: start: 20090427, end: 20090427

REACTIONS (1)
  - RASH [None]
